FAERS Safety Report 8104870 (Version 2)
Quarter: 2013Q1

REPORT INFORMATION
  Report Type: Spontaneous
  Country: TW (occurrence: TW)
  Receive Date: 20110824
  Receipt Date: 20130301
  Transmission Date: 20140127
  Serious: Yes (Hospitalization, Other)
  Sender: FDA-Public Use
  Company Number: PHHY2011TW74984

PATIENT
  Age: 25 Year
  Sex: Male

DRUGS (5)
  1. ZOLPIDEM [Suspect]
     Indication: INSOMNIA
     Dosage: 10 MG, 2 TO 3 TABLETS
     Route: 048
  2. ZOLPIDEM [Suspect]
     Dosage: 30 TO 50 MG, DAILY
  3. ZOLPIDEM [Suspect]
     Dosage: 150 TO 200 MG, UNK
     Route: 048
  4. ZOLPIDEM [Suspect]
     Dosage: 30 MG, UNK
     Route: 048
  5. PAROXETINE [Concomitant]
     Indication: DEPRESSION

REACTIONS (7)
  - Anxiety [Recovering/Resolving]
  - Chest discomfort [Recovering/Resolving]
  - Depressed mood [Recovering/Resolving]
  - Drug dependence [Recovering/Resolving]
  - Drug tolerance [Recovering/Resolving]
  - Euphoric mood [Recovering/Resolving]
  - Drug withdrawal syndrome [Recovering/Resolving]
